FAERS Safety Report 23235654 (Version 2)
Quarter: 2023Q4

REPORT INFORMATION
  Report Type: Spontaneous
  Country: IR (occurrence: IR)
  Receive Date: 20231128
  Receipt Date: 20231205
  Transmission Date: 20240109
  Serious: Yes (Hospitalization, Other)
  Sender: FDA-Public Use
  Company Number: IR-MLMSERVICE-20231113-4657634-1

PATIENT
  Age: 29 Year
  Sex: Male
  Weight: 83 kg

DRUGS (11)
  1. DOXORUBICIN HYDROCHLORIDE [Interacting]
     Active Substance: DOXORUBICIN HYDROCHLORIDE
     Indication: B-cell type acute leukaemia
     Dosage: 90 MG/M2, CYCLIC, ON DAYS 1-3, DOSAGE FORM INFUSION, CALGB REGIMEN
     Route: 042
  2. ITRACONAZOLE [Interacting]
     Active Substance: ITRACONAZOLE
     Indication: Infection prophylaxis
     Dosage: 200 MG, 2X/DAY (FREQ:12 H)
  3. VINCRISTINE [Interacting]
     Active Substance: VINCRISTINE
     Indication: B-cell type acute leukaemia
     Dosage: 2 MG/M2, ON DAYS 1, 8, 15, 22, CALGB REGIMEN
     Route: 042
  4. SULFAMETHOXAZOLE\TRIMETHOPRIM [Concomitant]
     Active Substance: SULFAMETHOXAZOLE\TRIMETHOPRIM
     Indication: Pneumocystis jirovecii pneumonia
     Dosage: UNK, 1X/DAY
  5. ALLOPURINOL [Concomitant]
     Active Substance: ALLOPURINOL
     Indication: Prophylaxis
     Dosage: 100 MG, 3X/DAY (FREQ: 8 H)
     Route: 048
  6. CIPROFLOXACIN [Concomitant]
     Active Substance: CIPROFLOXACIN
     Indication: Infection prophylaxis
     Dosage: 500 MG, 2X/DAY (FREQ: 12 H)
  7. ACYCLOVIR [Concomitant]
     Active Substance: ACYCLOVIR
     Indication: Infection prophylaxis
     Dosage: 400 MG, 2X/DAY (FREQ: 12 H)
  8. SODIUM CHLORIDE [Concomitant]
     Active Substance: SODIUM CHLORIDE
     Indication: Prophylaxis
     Dosage: 3 L, SINGLE (FREQ: (TOTAL), ISOTONIC)
     Route: 042
  9. PREDNISOLONE [Concomitant]
     Active Substance: PREDNISOLONE
     Indication: B-cell type acute leukaemia
     Dosage: 60 MG/M2, ON DAYS 1-21, CALGB REGIMEN
     Route: 048
  10. VALPROATE SODIUM [Concomitant]
     Active Substance: VALPROATE SODIUM
     Indication: Seizure
     Dosage: 500 MG, 2X/DAY (FREQ: 12 H)
     Route: 048
  11. CYCLOPHOSPHAMIDE [Concomitant]
     Active Substance: CYCLOPHOSPHAMIDE
     Indication: B-cell type acute leukaemia
     Dosage: 1200 MG/M2, CYCLIC, ON DAY 1, CALGB REGIMEN
     Route: 042

REACTIONS (2)
  - Drug interaction [Recovered/Resolved]
  - Generalised tonic-clonic seizure [Recovered/Resolved]
